FAERS Safety Report 4915752-1 (Version None)
Quarter: 2006Q1

REPORT INFORMATION
  Report Type: 
  Country: None (occurrence: None)
  Receive Date: 20060217
  Receipt Date: 20060210
  Transmission Date: 20060701
  Serious: Yes (Death, Life-Threatening)
  Sender: FDA-Public Use
  Company Number: CH-JNJFOC-20060202975

PATIENT
  Sex: Female

DRUGS (1)
  1. RISPERDAL [Suspect]
     Indication: DRUG USE FOR UNKNOWN INDICATION
     Route: 048

REACTIONS (6)
  - DEHYDRATION [None]
  - DYSGEUSIA [None]
  - DYSPHAGIA [None]
  - MOANING [None]
  - PARKINSONISM [None]
  - TARDIVE DYSKINESIA [None]
